FAERS Safety Report 14905543 (Version 1)
Quarter: 2018Q2

REPORT INFORMATION
  Report Type: Spontaneous
  Country: US (occurrence: US)
  Receive Date: 20180517
  Receipt Date: 20180517
  Transmission Date: 20180711
  Serious: No
  Sender: FDA-Public Use
  Company Number: US-SA-2018SA012377

PATIENT
  Age: 48 Year
  Sex: Male

DRUGS (1)
  1. LANTUS [Suspect]
     Active Substance: INSULIN GLARGINE
     Indication: TYPE 2 DIABETES MELLITUS
     Dosage: DOSE(38AM/60PM)
     Route: 051
     Dates: start: 2017

REACTIONS (4)
  - Product storage error [Unknown]
  - Product use issue [Unknown]
  - Blood glucose increased [Not Recovered/Not Resolved]
  - Dizziness [Recovered/Resolved]
